FAERS Safety Report 6478479-3 (Version None)
Quarter: 2009Q4

REPORT INFORMATION
  Report Type: 
  Country: None (occurrence: None)
  Receive Date: 20091207
  Receipt Date: 20091202
  Transmission Date: 20100525
  Serious: Yes (Death, Hospitalization, Other)
  Sender: FDA-Public Use
  Company Number: JP-ABBOTT-09P-087-0607091-00

PATIENT
  Sex: Female
  Weight: 73.4 kg

DRUGS (1)
  1. HUMIRA [Suspect]
     Indication: RHEUMATOID ARTHRITIS
     Route: 058
     Dates: start: 20090709, end: 20091022

REACTIONS (6)
  - ASCITES [None]
  - CARCINOEMBRYONIC ANTIGEN INCREASED [None]
  - COMPUTERISED TOMOGRAM ABNORMAL [None]
  - INTERSTITIAL LUNG DISEASE [None]
  - MALIGNANT ASCITES [None]
  - PYREXIA [None]
